FAERS Safety Report 15311266 (Version 1)
Quarter: 2018Q3

REPORT INFORMATION
  Report Type: Spontaneous
  Country: BE (occurrence: BE)
  Receive Date: 20180823
  Receipt Date: 20180823
  Transmission Date: 20181010
  Serious: Yes (Hospitalization)
  Sender: FDA-Public Use
  Company Number: BE-CELGENEUS-BEL-20180509238

PATIENT
  Age: 78 Year
  Sex: Female
  Weight: 57 kg

DRUGS (50)
  1. BEFACT FORTE [Concomitant]
     Indication: VITAMIN B12 DEFICIENCY
     Route: 048
  2. DAFALGAN [Concomitant]
     Active Substance: ACETAMINOPHEN
     Indication: HEADACHE
     Route: 048
     Dates: start: 20180130, end: 20180216
  3. IMODIUM [Concomitant]
     Active Substance: LOPERAMIDE HYDROCHLORIDE
     Dosage: TREATMENT
     Route: 065
  4. BISOPROLOL [Concomitant]
     Active Substance: BISOPROLOL
     Indication: HYPERTENSION
     Dosage: 2.5 MILLIGRAM
     Route: 048
     Dates: start: 20180406, end: 20180624
  5. BISOPROLOL [Concomitant]
     Active Substance: BISOPROLOL
     Dosage: 2.5 MILLIGRAM
     Route: 048
     Dates: end: 20180326
  6. CIPROFLOXACIN. [Concomitant]
     Active Substance: CIPROFLOXACIN
     Dosage: 500 MILLIGRAM
     Route: 048
     Dates: start: 20180323, end: 20180326
  7. IMODIUM [Concomitant]
     Active Substance: LOPERAMIDE HYDROCHLORIDE
     Dosage: 6 MILLIGRAM
     Route: 048
     Dates: start: 20180509, end: 20180517
  8. TRADONAL ODIS [Concomitant]
     Indication: PROCTALGIA
     Route: 048
     Dates: start: 20180221, end: 20180223
  9. VIDAZA [Suspect]
     Active Substance: AZACITIDINE
     Indication: ACUTE MYELOID LEUKAEMIA
     Dosage: 75 MILLIGRAM/SQ. METER
     Route: 058
     Dates: start: 20180116, end: 20180426
  10. PANTOMED [Concomitant]
     Indication: PROPHYLAXIS
     Dosage: 20 MILLIGRAM
     Route: 048
     Dates: start: 20180624
  11. ALPRAZOLAM. [Concomitant]
     Active Substance: ALPRAZOLAM
     Indication: VITAMIN B12 DEFICIENCY
     Dosage: .5 MILLIGRAM
     Route: 048
     Dates: start: 20180108, end: 20180123
  12. MOVICOL [Concomitant]
     Active Substance: POLYETHYLENE GLYCOL 3350\POTASSIUM CHLORIDE\SODIUM BICARBONATE\SODIUM CHLORIDE
     Indication: PROPHYLAXIS
     Dosage: 27.6 GRAM
     Route: 048
     Dates: start: 20180220, end: 20180509
  13. CIPROFLOXACIN. [Concomitant]
     Active Substance: CIPROFLOXACIN
     Indication: INFECTION PROPHYLAXIS
     Dosage: 500 MILLIGRAM
     Route: 048
     Dates: start: 20180302, end: 20180313
  14. CIPROFLOXACIN. [Concomitant]
     Active Substance: CIPROFLOXACIN
     Dosage: TREATMENT
     Route: 065
  15. TRADONAL ODIS [Concomitant]
     Indication: PAIN PROPHYLAXIS
     Route: 048
     Dates: start: 20180327
  16. ORAL FLUIDS [Concomitant]
     Indication: PROPHYLAXIS
     Route: 048
     Dates: start: 20180115
  17. COVERSYL [Concomitant]
     Active Substance: PERINDOPRIL
     Dosage: 5 MILLIGRAM
     Route: 048
     Dates: start: 20180518, end: 20180519
  18. DULCOLAX NOS [Concomitant]
     Active Substance: BISACODYL OR DOCUSATE SODIUM
     Indication: CONSTIPATION
     Dosage: 5 MILLIGRAM
     Route: 048
     Dates: start: 20180220, end: 20180220
  19. GLUCOSE W/SODIUM CHLORIDE [Concomitant]
     Dosage: GLUCOSE 5% + NACL 0.45%
     Route: 041
     Dates: start: 20180609, end: 20180612
  20. VORICONAZOLE. [Concomitant]
     Active Substance: VORICONAZOLE
     Route: 065
  21. CIPROFLOXACIN. [Concomitant]
     Active Substance: CIPROFLOXACIN
     Dosage: 500 MILLIGRAM
     Route: 048
     Dates: start: 20180516, end: 20180516
  22. ASAFLOW [Concomitant]
     Active Substance: ASPIRIN
     Indication: ACUTE MYOCARDIAL INFARCTION
     Dosage: 80 MILLIGRAM
     Route: 048
     Dates: end: 20180624
  23. REDOMEX [Concomitant]
     Active Substance: AMITRIPTYLINE HYDROCHLORIDE
     Indication: TENSION HEADACHE
     Dosage: 50 MILLIGRAM
     Route: 048
     Dates: start: 1990, end: 20180217
  24. REDOMEX [Concomitant]
     Active Substance: AMITRIPTYLINE HYDROCHLORIDE
     Dosage: 25 MILLIGRAM
     Route: 048
     Dates: start: 20180219
  25. ALLOPURINOL. [Concomitant]
     Active Substance: ALLOPURINOL
     Dosage: 300 MILLIGRAM
     Route: 048
     Dates: start: 20180418
  26. GLUCOSE W/SODIUM CHLORIDE [Concomitant]
     Indication: PROPHYLAXIS
     Dosage: GLUCOSE 5% + NACL 0.45%
     Route: 041
     Dates: start: 20180115, end: 20180119
  27. GLUCOSE W/SODIUM CHLORIDE [Concomitant]
     Dosage: GLUCOSE 5% + NACL 0.45%
     Route: 041
     Dates: start: 20180517, end: 20180520
  28. CIPROFLOXACIN. [Concomitant]
     Active Substance: CIPROFLOXACIN
     Indication: NEUTROPENIA
     Dosage: 500 MILLIGRAM
     Route: 048
     Dates: start: 20180214, end: 20180217
  29. ATORVASTATIN [Concomitant]
     Active Substance: ATORVASTATIN
     Indication: HYPERCHOLESTEROLAEMIA
     Dosage: 40 MILLIGRAM
     Route: 048
  30. MOVICOL [Concomitant]
     Active Substance: POLYETHYLENE GLYCOL 3350\POTASSIUM CHLORIDE\SODIUM BICARBONATE\SODIUM CHLORIDE
     Indication: CONSTIPATION
     Dosage: 13.8 GRAM
     Route: 048
     Dates: start: 20180119, end: 20180217
  31. DULCOLAX NOS [Concomitant]
     Active Substance: BISACODYL OR DOCUSATE SODIUM
     Dosage: 10 MILLIGRAM
     Route: 048
     Dates: start: 20180221, end: 20180222
  32. DULCOLAX NOS [Concomitant]
     Active Substance: BISACODYL OR DOCUSATE SODIUM
     Dosage: 5 MILLIGRAM
     Route: 048
     Dates: start: 20180223
  33. CIPROFLOXACIN. [Concomitant]
     Active Substance: CIPROFLOXACIN
     Indication: DIARRHOEA
     Dosage: 500 MILLIGRAM
     Route: 048
     Dates: start: 20180224, end: 20180301
  34. VIDAZA [Suspect]
     Active Substance: AZACITIDINE
     Dosage: 75 MILLIGRAM/SQ. METER
     Route: 058
     Dates: start: 20180601, end: 20180607
  35. VIDAZA [Suspect]
     Active Substance: AZACITIDINE
     Dosage: 75 MILLIGRAM/SQ. METER
     Route: 058
     Dates: start: 20180323, end: 20180327
  36. CLOPIDOGREL [Concomitant]
     Active Substance: CLOPIDOGREL BISULFATE
     Indication: ACUTE MYOCARDIAL INFARCTION
     Dosage: 75 MILLIGRAM
     Route: 048
     Dates: start: 1990
  37. COVERSYL [Concomitant]
     Active Substance: PERINDOPRIL
     Indication: HYPERTENSION
     Dosage: 5 MILLIGRAM
     Route: 048
     Dates: start: 1990
  38. LITICAN [Concomitant]
     Active Substance: ALIZAPRIDE HYDROCHLORIDE
     Indication: VOMITING
  39. ALLOPURINOL. [Concomitant]
     Active Substance: ALLOPURINOL
     Indication: PROPHYLAXIS
     Dosage: 300 MILLIGRAM
     Route: 048
     Dates: start: 20180115, end: 20180413
  40. CLEEN [Concomitant]
     Indication: COLONOSCOPY
     Route: 054
     Dates: start: 20180518, end: 20180518
  41. BURINEX [Concomitant]
     Active Substance: BUMETANIDE
     Indication: OEDEMA PERIPHERAL
     Dosage: 1 MILLIGRAM
     Route: 048
     Dates: start: 20180601
  42. CIPROFLOXACIN. [Concomitant]
     Active Substance: CIPROFLOXACIN
     Dosage: 1000 MILLIGRAM
     Route: 048
     Dates: start: 20180525, end: 20180624
  43. CIPROFLOXACIN. [Concomitant]
     Active Substance: CIPROFLOXACIN
     Dosage: 1000 MILLIGRAM
     Route: 048
     Dates: start: 20180406, end: 20180515
  44. IMODIUM [Concomitant]
     Active Substance: LOPERAMIDE HYDROCHLORIDE
     Indication: DIARRHOEA
     Route: 048
     Dates: start: 20180517
  45. VIDAZA [Suspect]
     Active Substance: AZACITIDINE
     Dosage: 75 MILLIGRAM/SQ. METER
     Route: 058
     Dates: start: 20180420, end: 20180426
  46. VENETOCLAX. [Concomitant]
     Active Substance: VENETOCLAX
     Indication: ACUTE MYELOID LEUKAEMIA
     Route: 065
  47. ALPRAZOLAM. [Concomitant]
     Active Substance: ALPRAZOLAM
     Dosage: .25 MILLIGRAM
     Route: 048
     Dates: start: 20180124, end: 20180624
  48. LITICAN [Concomitant]
     Active Substance: ALIZAPRIDE HYDROCHLORIDE
     Indication: NAUSEA
     Route: 048
     Dates: start: 2018
  49. VORICONAZOLE. [Concomitant]
     Active Substance: VORICONAZOLE
     Indication: BRONCHOPULMONARY ASPERGILLOSIS
     Dosage: 250 MILLIGRAM
     Route: 048
     Dates: start: 20180407
  50. CIPROFLOXACIN. [Concomitant]
     Active Substance: CIPROFLOXACIN
     Dosage: 1000 MILLIGRAM
     Route: 048
     Dates: start: 20180517, end: 20180522

REACTIONS (3)
  - Diarrhoea [Recovered/Resolved]
  - Respiratory failure [Recovered/Resolved]
  - Diarrhoea [Recovered/Resolved]

NARRATIVE: CASE EVENT DATE: 20180509
